FAERS Safety Report 6871161-X (Version None)
Quarter: 2010Q3

REPORT INFORMATION
  Report Type: 
  Country: None (occurrence: None)
  Receive Date: 20100723
  Receipt Date: 20100719
  Transmission Date: 20110219
  Serious: Yes (Hospitalization)
  Sender: FDA-Public Use
  Company Number: CA-ROCHE-712336

PATIENT
  Sex: Male
  Weight: 84 kg

DRUGS (17)
  1. BEVACIZUMAB [Suspect]
     Dosage: TEMPORARILY INTERRUPTED.
     Route: 042
     Dates: start: 20100518, end: 20100629
  2. CAPECITABINE [Suspect]
     Dosage: BATCH LOT: COMMERCIAL SUPPLY. TEMPORARILY INTERRUPTED.
     Route: 048
     Dates: start: 20100519, end: 20100617
  3. NITRO-DUR [Concomitant]
     Dates: start: 20040401
  4. ASPIRIN [Concomitant]
     Dates: start: 20040401, end: 20100626
  5. RAMIPRIL [Concomitant]
     Dates: start: 20040401, end: 20100626
  6. OXAZEPAM [Concomitant]
     Dates: start: 20070101, end: 20100626
  7. OXAZEPAM [Concomitant]
     Dates: start: 20100627
  8. CRESTOR [Concomitant]
     Dates: start: 20040401, end: 20100626
  9. COLACE [Concomitant]
     Dates: start: 20100420, end: 20100426
  10. DILAUDID [Concomitant]
     Route: 048
     Dates: start: 20100617, end: 20100626
  11. DILAUDID [Concomitant]
     Route: 048
     Dates: start: 20100701
  12. LACTULOSE [Concomitant]
     Dates: start: 20100617, end: 20100626
  13. LACTULOSE [Concomitant]
     Dates: start: 20100630
  14. DECADRON [Concomitant]
     Dates: start: 20100617, end: 20100626
  15. DECADRON [Concomitant]
     Dates: start: 20100626
  16. MAVERAN [Concomitant]
     Route: 042
     Dates: start: 20100617, end: 20100626
  17. MAVERAN [Concomitant]
     Route: 042
     Dates: start: 20100626, end: 20100704

REACTIONS (2)
  - INTESTINAL OBSTRUCTION [None]
  - SMALL INTESTINAL OBSTRUCTION [None]
